FAERS Safety Report 16540583 (Version 5)
Quarter: 2021Q3

REPORT INFORMATION
  Report Type: Spontaneous
  Country: US (occurrence: US)
  Receive Date: 20190708
  Receipt Date: 20210806
  Transmission Date: 20211014
  Serious: No
  Sender: FDA-Public Use
  Company Number: US-SA-2019SA180824

PATIENT
  Age: 20 Year
  Sex: Male

DRUGS (4)
  1. HYDROXYZINE HYDROCHLORIDE. [Concomitant]
     Active Substance: HYDROXYZINE HYDROCHLORIDE
  2. TRIAMCINOLONE [Concomitant]
     Active Substance: TRIAMCINOLONE
  3. TACROLIMUS. [Concomitant]
     Active Substance: TACROLIMUS
  4. DUPIXENT [Suspect]
     Active Substance: DUPILUMAB
     Indication: DERMATITIS ATOPIC
     Dosage: 300 MG, QOW
     Route: 058
     Dates: start: 20190220

REACTIONS (6)
  - Inflammation [Not Recovered/Not Resolved]
  - Paraesthesia [Unknown]
  - Dermatitis atopic [Not Recovered/Not Resolved]
  - Dermatitis atopic [Recovering/Resolving]
  - Alopecia [Not Recovered/Not Resolved]
  - Diarrhoea [Not Recovered/Not Resolved]

NARRATIVE: CASE EVENT DATE: 20191112
